FAERS Safety Report 24444516 (Version 2)
Quarter: 2024Q4

REPORT INFORMATION
  Report Type: Report from Study
  Country: CA (occurrence: CA)
  Receive Date: 20241016
  Receipt Date: 20241017
  Transmission Date: 20250114
  Serious: No
  Sender: ROCHE
  Company Number: CA-ROCHE-2700656

PATIENT
  Sex: Male

DRUGS (15)
  1. RITUXAN [Suspect]
     Active Substance: RITUXIMAB
     Indication: Pemphigus
     Route: 042
     Dates: start: 20150511, end: 20230321
  2. CITALOPRAM [Concomitant]
     Active Substance: CITALOPRAM
  3. AMLODIPINE [Concomitant]
     Active Substance: AMLODIPINE BESYLATE
  4. BROMAZEPAM [Concomitant]
     Active Substance: BROMAZEPAM
  5. JANUMET [Concomitant]
     Active Substance: METFORMIN HYDROCHLORIDE\SITAGLIPTIN PHOSPHATE
  6. PERINDOPRIL [Concomitant]
     Active Substance: PERINDOPRIL
  7. AZELAIC ACID [Concomitant]
     Active Substance: AZELAIC ACID
     Indication: Chloasma
  8. CLOBETASOL PROPIONATE [Concomitant]
     Active Substance: CLOBETASOL PROPIONATE
  9. CRESTOR [Concomitant]
     Active Substance: ROSUVASTATIN CALCIUM
     Indication: Blood cholesterol increased
  10. DIPROLENE [Concomitant]
     Active Substance: BETAMETHASONE DIPROPIONATE
  11. NYSTATIN [Concomitant]
     Active Substance: NYSTATIN
     Indication: Oral candidiasis
     Dosage: SWISH AND SWALLOW 500000 UNITS
  12. ROSUVASTATIN [Concomitant]
     Active Substance: ROSUVASTATIN
  13. TRIAMCINOLONE ACETONIDE [Concomitant]
     Active Substance: TRIAMCINOLONE ACETONIDE
     Indication: Angular cheilitis
  14. PROSCAR [Concomitant]
     Active Substance: FINASTERIDE
  15. TAMSULOSIN [Concomitant]
     Active Substance: TAMSULOSIN

REACTIONS (2)
  - No adverse event [Unknown]
  - Off label use [Unknown]
